FAERS Safety Report 13052568 (Version 1)
Quarter: 2016Q4

REPORT INFORMATION
  Report Type: Spontaneous
  Country: US (occurrence: US)
  Receive Date: 20161221
  Receipt Date: 20161221
  Transmission Date: 20170207
  Serious: No
  Sender: FDA-Public Use
  Company Number: US-ALLERGAN-1000082907

PATIENT
  Sex: Female

DRUGS (3)
  1. BYSTOLIC [Suspect]
     Active Substance: NEBIVOLOL HYDROCHLORIDE
     Dosage: 5 MG, UNK
     Dates: start: 201506, end: 201511
  2. BYSTOLIC [Suspect]
     Active Substance: NEBIVOLOL HYDROCHLORIDE
     Dosage: 2.5 MG, QD
     Dates: start: 201511
  3. LOCAL ANESTHETIC [Suspect]
     Active Substance: UNSPECIFIED INGREDIENT
     Indication: ANAESTHESIA PROCEDURE
     Dosage: UNK

REACTIONS (7)
  - Dizziness [Unknown]
  - Hypotension [Unknown]
  - Asthenia [Unknown]
  - Erythema [Unknown]
  - Hypersensitivity [Unknown]
  - Vasodilatation [Unknown]
  - Dizziness [Unknown]

NARRATIVE: CASE EVENT DATE: 2015
